FAERS Safety Report 6678094-2 (Version None)
Quarter: 2010Q2

REPORT INFORMATION
  Report Type: 
  Country: None (occurrence: None)
  Receive Date: 20100409
  Receipt Date: 20100409
  Transmission Date: 20101027
  Serious: No
  Sender: FDA-Public Use
  Company Number: None

PATIENT
  Age: 39 Year
  Sex: Female
  Weight: 83.9154 kg

DRUGS (1)
  1. BIAXIN [Suspect]
     Indication: SINUSITIS
     Dosage: 1000MG PER DAY PO
     Route: 048
     Dates: start: 20091019, end: 20091024

REACTIONS (5)
  - BLINDNESS [None]
  - DEAFNESS [None]
  - MIGRAINE [None]
  - NAUSEA [None]
  - VERTIGO [None]
